FAERS Safety Report 7381750-4 (Version None)
Quarter: 2011Q1

REPORT INFORMATION
  Report Type: 
  Country: None (occurrence: None)
  Receive Date: 20110329
  Receipt Date: 20110321
  Transmission Date: 20110831
  Serious: Yes (Life-Threatening, Hospitalization)
  Sender: FDA-Public Use
  Company Number: US-KINGPHARMUSA00001-K201100133

PATIENT
  Age: 45 Year
  Sex: Female

DRUGS (1)
  1. TAPAZOLE [Suspect]
     Indication: BASEDOW'S DISEASE
     Dosage: UNK
     Route: 048
     Dates: start: 20100101

REACTIONS (6)
  - MALNUTRITION [None]
  - HEPATIC ENCEPHALOPATHY [None]
  - ASTHENIA [None]
  - MALABSORPTION [None]
  - CHRONIC HEPATIC FAILURE [None]
  - SEDATION [None]
